FAERS Safety Report 8227934-4 (Version None)
Quarter: 2012Q1

REPORT INFORMATION
  Report Type: 
  Country: None (occurrence: None)
  Receive Date: 20120307
  Receipt Date: 20100504
  Transmission Date: 20120608
  Serious: Yes (Other)
  Sender: FDA-Public Use
  Company Number: PHHY2010US29227

PATIENT
  Age: 80 Year
  Sex: Female

DRUGS (1)
  1. AFINITOR [Suspect]
     Indication: MALIGNANT NEOPLASM OF ISLETS OF LANGERHANS
     Dosage: 5 MG DAILY, ORAL
     Route: 048
     Dates: start: 20100223

REACTIONS (1)
  - WEIGHT DECREASED [None]
